FAERS Safety Report 8849086 (Version 1)
Quarter: 2012Q4

REPORT INFORMATION
  Report Type: Spontaneous
  Country: US (occurrence: None)
  Receive Date: 20121016
  Receipt Date: 20121016
  Transmission Date: 20130627
  Serious: No
  Sender: FDA-Public Use
  Company Number: None

PATIENT

DRUGS (1)
  1. EYE DROPS [Suspect]
     Dates: start: 20120210, end: 20120619

REACTIONS (2)
  - Mydriasis [None]
  - Vision blurred [None]
